FAERS Safety Report 5002190-9 (Version None)
Quarter: 2006Q2

REPORT INFORMATION
  Report Type: 
  Country: None (occurrence: None)
  Receive Date: 20060510
  Receipt Date: 20060427
  Transmission Date: 20061013
  Serious: Yes (Life-Threatening, Other)
  Sender: FDA-Public Use
  Company Number: 012233

PATIENT
  Age: 45 Year
  Sex: Male

DRUGS (17)
  1. PRIALT [Suspect]
     Indication: POST LAMINECTOMY SYNDROME
     Dosage: SEE IMAGE
     Route: 037
     Dates: start: 20060227, end: 20060301
  2. PRIALT [Suspect]
     Indication: POST LAMINECTOMY SYNDROME
     Dosage: SEE IMAGE
     Route: 037
     Dates: start: 20060301, end: 20060401
  3. PRIALT [Suspect]
     Indication: POST LAMINECTOMY SYNDROME
     Dosage: SEE IMAGE
     Route: 037
     Dates: start: 20060406, end: 20060427
  4. FENTANYL [Concomitant]
  5. OXYCONTIN [Concomitant]
  6. VICODIN [Concomitant]
  7. BACLOFEN [Concomitant]
  8. ZANAFLEX [Concomitant]
  9. NEURONTIN [Concomitant]
  10. KLONOPIN [Concomitant]
  11. ELAVIL [Concomitant]
  12. LYRICA [Concomitant]
  13. CYMBALTA [Concomitant]
  14. PREVACID [Concomitant]
  15. LOVASTATIN [Concomitant]
  16. METFORMIN [Concomitant]
  17. METOCLOPRAMIDE [Concomitant]

REACTIONS (6)
  - AGGRESSION [None]
  - APNOEA [None]
  - CONFUSIONAL STATE [None]
  - PROCEDURAL COMPLICATION [None]
  - PSYCHOTIC DISORDER [None]
  - SOMNOLENCE [None]
